FAERS Safety Report 17704382 (Version 1)
Quarter: 2020Q2

REPORT INFORMATION
  Report Type: Spontaneous
  Country: JP (occurrence: JP)
  Receive Date: 20200424
  Receipt Date: 20200424
  Transmission Date: 20200714
  Serious: Yes (Other)
  Sender: FDA-Public Use
  Company Number: JP-ASTELLAS-2019JP030164

PATIENT
  Age: 73 Year
  Sex: Male

DRUGS (2)
  1. XOSPATA [Suspect]
     Active Substance: GILTERITINIB
     Dosage: 120 MG, ONCE DAILY, AFTER BREAKFAST
     Route: 048
     Dates: start: 20191224
  2. XOSPATA [Suspect]
     Active Substance: GILTERITINIB
     Indication: ACUTE MYELOID LEUKAEMIA REFRACTORY
     Dosage: 120 MG, ONCE DAILY, IN THE EVENING
     Route: 048
     Dates: start: 20191223, end: 20191223

REACTIONS (10)
  - White blood cell count increased [Unknown]
  - Night sweats [Unknown]
  - Dizziness [Unknown]
  - Hypersensitivity [Unknown]
  - Asthma [Unknown]
  - Pneumonia bacterial [Unknown]
  - White blood cell count abnormal [Unknown]
  - Rash [Unknown]
  - Pneumonia [Unknown]
  - Epistaxis [Unknown]

NARRATIVE: CASE EVENT DATE: 20191226
